FAERS Safety Report 6308596-X (Version None)
Quarter: 2009Q3

REPORT INFORMATION
  Report Type: 
  Country: None (occurrence: None)
  Receive Date: 20090813
  Receipt Date: 20090810
  Transmission Date: 20100115
  Serious: Yes (Death, Other)
  Sender: FDA-Public Use
  Company Number: PHHY2009IE04789

PATIENT
  Sex: Male

DRUGS (7)
  1. CLOZARIL [Suspect]
     Indication: SCHIZOPHRENIA
     Dosage: 400 MG DAILY
     Route: 048
     Dates: start: 19980422
  2. PAROXETINE HCL [Suspect]
     Dosage: 30MG DAILY
  3. EPILIM CHRONO [Concomitant]
     Indication: EPILEPSY
     Dosage: 1000 MG/DAY
     Route: 048
  4. ASPIRIN [Concomitant]
     Dosage: 75 MG DAILY
     Route: 048
  5. NEXIUM [Concomitant]
     Dosage: 40 MG DAILY
     Route: 048
  6. CENTRUM [Concomitant]
     Dosage: 1 DF DAILY
     Route: 048
  7. TOLTERODINE TARTRATE [Concomitant]
     Indication: STRESS URINARY INCONTINENCE
     Dosage: 4 MG DAILY
     Route: 048

REACTIONS (7)
  - ABDOMINAL PAIN UPPER [None]
  - ARRHYTHMIA [None]
  - DYSPNOEA [None]
  - LETHARGY [None]
  - LOSS OF CONSCIOUSNESS [None]
  - LOWER RESPIRATORY TRACT INFECTION [None]
  - RESUSCITATION [None]
